FAERS Safety Report 15272324 (Version 1)
Quarter: 2018Q4

REPORT INFORMATION
  Report Type: Other
  Country: IL (occurrence: IL)
  Receive Date: 20180813
  Receipt Date: 20180813
  Transmission Date: 20190204
  Serious: Yes (Life-Threatening, Hospitalization)
  Sender: FDA-Public Use
  Company Number: IL-GENUS_LIFESCIENCES-USA-POI0580201800106

PATIENT
  Age: 36 Year
  Sex: Female

DRUGS (3)
  1. LEVOLET (LEVOTHYROXINE) [Suspect]
     Active Substance: LEVOTHYROXINE
     Indication: HYPOTHYROIDISM
  2. ENOXAPARIN [Concomitant]
     Active Substance: ENOXAPARIN
     Route: 058
  3. PROPRANOLOL [Concomitant]
     Active Substance: PROPRANOLOL HYDROCHLORIDE

REACTIONS (8)
  - Anaphylactoid syndrome of pregnancy [Recovered/Resolved]
  - Restlessness [Recovered/Resolved]
  - Coagulopathy [Recovered/Resolved]
  - Erythema [Recovered/Resolved]
  - Abortion induced [Recovered/Resolved]
  - Dyspnoea [Recovered/Resolved]
  - Anaphylactic shock [Recovered/Resolved]
  - Polyhydramnios [Recovered/Resolved]

NARRATIVE: CASE EVENT DATE: 2017
